FAERS Safety Report 7900820-2 (Version None)
Quarter: 2011Q4

REPORT INFORMATION
  Report Type: 
  Country: None (occurrence: None)
  Receive Date: 20111108
  Receipt Date: 20111024
  Transmission Date: 20120403
  Serious: Yes (Other)
  Sender: FDA-Public Use
  Company Number: TR-CTI_01417_2011

PATIENT
  Age: 7 Year
  Sex: Male

DRUGS (1)
  1. SPECTRACEF [Suspect]
     Indication: PHARYNGOTONSILLITIS
     Dosage: UNK

REACTIONS (11)
  - PRURITUS [None]
  - SWELLING [None]
  - ARTHRITIS [None]
  - URTICARIA [None]
  - PYREXIA [None]
  - C-REACTIVE PROTEIN INCREASED [None]
  - PAIN [None]
  - RED BLOOD CELL SEDIMENTATION RATE INCREASED [None]
  - SERUM SICKNESS-LIKE REACTION [None]
  - ERYTHEMA [None]
  - RASH PAPULAR [None]
